FAERS Safety Report 5788614-8 (Version None)
Quarter: 2008Q2

REPORT INFORMATION
  Report Type: 
  Country: None (occurrence: None)
  Receive Date: 20080626
  Receipt Date: 20080520
  Transmission Date: 20081010
  Serious: No
  Sender: FDA-Public Use
  Company Number: US-BAYER-200823825NA

PATIENT
  Age: 29 Year
  Sex: Female
  Weight: 82 kg

DRUGS (1)
  1. YASMIN [Suspect]
     Indication: UNEVALUABLE EVENT
     Route: 048
     Dates: start: 20080427

REACTIONS (1)
  - POST PROCEDURAL HAEMORRHAGE [None]
